FAERS Safety Report 4658647-3 (Version None)
Quarter: 2005Q2

REPORT INFORMATION
  Report Type: 
  Country: None (occurrence: None)
  Receive Date: 20050510
  Receipt Date: 20050510
  Transmission Date: 20051028
  Serious: Yes (Other)
  Sender: FDA-Public Use
  Company Number: None

PATIENT
  Age: 50 Year
  Sex: Male

DRUGS (12)
  1. QUETIAPINE FUMARATE [Suspect]
     Indication: SCHIZOPHRENIA
     Dosage: 100 MG  BID   ORAL
     Route: 048
     Dates: start: 20041230, end: 20050112
  2. TYLENOL (CAPLET) [Concomitant]
  3. NOVLIN R [Concomitant]
  4. NOVOLIN N [Concomitant]
  5. ATROVENT/PROVENTIL [Concomitant]
  6. SENOCOT [Concomitant]
  7. HEPARIN [Concomitant]
  8. ATIVAN [Concomitant]
  9. LOPRESSOR [Concomitant]
  10. VIT C TAB [Concomitant]
  11. ZINC SULFATE [Concomitant]
  12. FOLIC ACID [Concomitant]

REACTIONS (1)
  - HEPATIC ENZYME INCREASED [None]
